FAERS Safety Report 22910006 (Version 4)
Quarter: 2023Q4

REPORT INFORMATION
  Report Type: Report from Study
  Country: CA (occurrence: CA)
  Receive Date: 20230906
  Receipt Date: 20231109
  Transmission Date: 20240110
  Serious: Yes (Other)
  Sender: FDA-Public Use
  Company Number: CA-JNJFOC-20230904077

PATIENT
  Age: 11 Year
  Sex: Male
  Weight: 57 kg

DRUGS (4)
  1. REMICADE [Suspect]
     Active Substance: INFLIXIMAB
     Indication: Crohn^s disease
     Route: 042
     Dates: start: 20220913
  2. REMICADE [Suspect]
     Active Substance: INFLIXIMAB
     Route: 042
  3. REMICADE [Suspect]
     Active Substance: INFLIXIMAB
     Dosage: MINI-INDUCTION AT WEEK 0, 2, FOLLOWED BY RETURN ONCE IN EVERY 6 WEEK
     Route: 042
  4. REMICADE [Suspect]
     Active Substance: INFLIXIMAB
     Dosage: STAT REMICADE 300MG IV DOSE REQUESTED FOR PATIENT SYMPTOM FLARE FOLLOWED BY 300MG Q4 WEEK DOSING. WE
     Route: 042

REACTIONS (1)
  - Crohn^s disease [Unknown]
